FAERS Safety Report 10746129 (Version 1)
Quarter: 2015Q1

REPORT INFORMATION
  Report Type: Spontaneous
  Country: DE (occurrence: DE)
  Receive Date: 20150128
  Receipt Date: 20150128
  Transmission Date: 20150721
  Serious: Yes (Hospitalization)
  Sender: FDA-Public Use
  Company Number: DE-MYLANLABS-2015M1001143

PATIENT

DRUGS (4)
  1. TILIDIN N [Suspect]
     Active Substance: NALOXONE HYDROCHLORIDE\TILIDINE HYDROCHLORIDE
     Indication: PRODUCT USED FOR UNKNOWN INDICATION
     Dosage: 20 DF, ONCE
     Route: 048
     Dates: start: 20150113, end: 20150113
  2. METODURA COMP [Suspect]
     Active Substance: HYDROCHLOROTHIAZIDE\METOPROLOL TARTRATE
     Indication: PRODUCT USED FOR UNKNOWN INDICATION
     Dosage: 10 DF, ONCE
     Route: 048
     Dates: start: 20150113, end: 20150113
  3. DOMINAL (PROTHIPENDYL HYDROCHLORIDE) [Suspect]
     Active Substance: PROTHIPENDYL HYDROCHLORIDE
     Indication: PRODUCT USED FOR UNKNOWN INDICATION
     Dosage: 10 DF, ONCE (ONCE 10 TABLETS (800MG))
     Route: 048
     Dates: start: 20150113, end: 20150113
  4. ALCOHOL. [Suspect]
     Active Substance: ALCOHOL
     Indication: PRODUCT USED FOR UNKNOWN INDICATION
     Dosage: UNK
     Route: 048
     Dates: start: 20150113, end: 20150113

REACTIONS (3)
  - No adverse event [Unknown]
  - Intentional overdose [None]
  - Suicide attempt [Unknown]

NARRATIVE: CASE EVENT DATE: 20150113
